FAERS Safety Report 10973659 (Version 2)
Quarter: 2015Q1

REPORT INFORMATION
  Report Type: Spontaneous
  Country: US (occurrence: None)
  Receive Date: 20150226
  Receipt Date: 20150226
  Transmission Date: 20150721
  Serious: No
  Sender: FDA-Public Use
  Company Number: TPA2009A03586

PATIENT
  Sex: 0

DRUGS (1)
  1. ULORIC [Suspect]
     Active Substance: FEBUXOSTAT
     Indication: HYPERURICAEMIA
     Route: 048

REACTIONS (3)
  - Gouty tophus [None]
  - Gout [None]
  - Hyperuricaemia [None]

NARRATIVE: CASE EVENT DATE: 200911
